FAERS Safety Report 4492913-X (Version None)
Quarter: 2004Q4

REPORT INFORMATION
  Report Type: 
  Country: None (occurrence: None)
  Receive Date: 20041104
  Receipt Date: 20020516
  Transmission Date: 20050328
  Serious: Yes (Death, Hospitalization, Other)
  Sender: FDA-Public Use
  Company Number: US-MERCK-0205USA01996

PATIENT
  Age: 53 Year
  Sex: Male
  Weight: 95 kg

DRUGS (4)
  1. ALUMINUM HYDROXIDE AND MAGNESIUM TRISILICATE [Concomitant]
     Route: 065
  2. PREVACID [Concomitant]
     Route: 065
  3. VIOXX [Suspect]
     Indication: OSTEOARTHRITIS
     Route: 048
     Dates: start: 20000106
  4. VIOXX [Suspect]
     Route: 048
     Dates: end: 20000520

REACTIONS (9)
  - BILIARY COLIC [None]
  - BILIARY NEOPLASM [None]
  - CHOLECYSTITIS CHRONIC [None]
  - GASTRITIS EROSIVE [None]
  - HYPERLIPIDAEMIA [None]
  - HYPERTENSION [None]
  - INSOMNIA [None]
  - OESOPHAGITIS [None]
  - UMBILICAL HERNIA [None]
